FAERS Safety Report 10361745 (Version 2)
Quarter: 2014Q3

REPORT INFORMATION
  Report Type: Spontaneous
  Country: JP (occurrence: JP)
  Receive Date: 20140805
  Receipt Date: 20140808
  Transmission Date: 20150326
  Serious: Yes (Other)
  Sender: FDA-Public Use
  Company Number: JP-ASTRAZENECA-2014SE55856

PATIENT
  Age: 58 Year
  Sex: Male

DRUGS (1)
  1. BICALUTAMIDE (NON AZ PRODUCT) [Suspect]
     Active Substance: BICALUTAMIDE
     Route: 048

REACTIONS (1)
  - Platelet count decreased [Not Recovered/Not Resolved]
